FAERS Safety Report 13160624 (Version 1)
Quarter: 2017Q1

REPORT INFORMATION
  Report Type: Spontaneous
  Country: CN (occurrence: CN)
  Receive Date: 20170129
  Receipt Date: 20170129
  Transmission Date: 20170428
  Serious: Yes (Other)
  Sender: FDA-Public Use
  Company Number: CN-BAXTER-2017BAX004261

PATIENT
  Age: 29 Year
  Sex: Male

DRUGS (35)
  1. ENDOXAN [Suspect]
     Active Substance: CYCLOPHOSPHAMIDE
     Indication: B-CELL TYPE ACUTE LEUKAEMIA
     Dosage: HYPER-CVAD-B
     Route: 065
     Dates: start: 2013
  2. VINCRISTINE [Concomitant]
     Active Substance: VINCRISTINE
     Dosage: HYPER-CVAD-A REGIMEN
     Route: 065
     Dates: start: 2013
  3. VINCRISTINE [Concomitant]
     Active Substance: VINCRISTINE
     Dosage: VDCP
     Route: 065
     Dates: start: 2013
  4. PREDNISONE. [Concomitant]
     Active Substance: PREDNISONE
     Dosage: VDCP
     Route: 065
     Dates: start: 2013
  5. ENDOXAN [Suspect]
     Active Substance: CYCLOPHOSPHAMIDE
     Dosage: VDCP
     Route: 065
     Dates: start: 2013
  6. VINCRISTINE [Concomitant]
     Active Substance: VINCRISTINE
     Indication: PHILADELPHIA CHROMOSOME POSITIVE
     Dosage: VDCP REGIMEN
     Route: 065
     Dates: start: 2013
  7. L-ASPARAGINASE [Concomitant]
     Active Substance: ASPARAGINASE
     Indication: PHILADELPHIA CHROMOSOME POSITIVE
     Dosage: VDCP REGIMEN
     Route: 065
  8. ENDOXAN [Suspect]
     Active Substance: CYCLOPHOSPHAMIDE
     Indication: PHILADELPHIA CHROMOSOME POSITIVE
     Dosage: HYPER-CVAD-A
     Route: 065
     Dates: start: 2013
  9. ENDOXAN [Suspect]
     Active Substance: CYCLOPHOSPHAMIDE
     Dosage: HYPER-CVAD-B
     Route: 065
     Dates: start: 2013
  10. VINCRISTINE [Concomitant]
     Active Substance: VINCRISTINE
     Dosage: HYPER-CVAD-B REGIMEN
     Route: 065
     Dates: start: 2013
  11. L-ASPARAGINASE [Concomitant]
     Active Substance: ASPARAGINASE
     Indication: B-CELL TYPE ACUTE LEUKAEMIA
     Dosage: VDLP REGIMEN
     Route: 065
     Dates: start: 201301
  12. ADRIAMYCIN [Concomitant]
     Active Substance: DOXORUBICIN HYDROCHLORIDE
     Dosage: HYPER-CVAD-B REGIMEN
     Route: 065
     Dates: start: 2013
  13. VINCRISTINE [Concomitant]
     Active Substance: VINCRISTINE
     Indication: B-CELL TYPE ACUTE LEUKAEMIA
     Dosage: VDLP REGIMEN
     Route: 065
     Dates: start: 201301
  14. PREDNISONE. [Concomitant]
     Active Substance: PREDNISONE
     Dosage: VDP REGIMEN
     Route: 065
     Dates: start: 2013
  15. DEXAMETHASONE. [Concomitant]
     Active Substance: DEXAMETHASONE
     Indication: PHILADELPHIA CHROMOSOME POSITIVE
     Dosage: HYPER-CVAD-B REGIMEN
     Route: 065
     Dates: start: 2013
  16. ADRIAMYCIN [Concomitant]
     Active Substance: DOXORUBICIN HYDROCHLORIDE
     Indication: B-CELL TYPE ACUTE LEUKAEMIA
     Dosage: HYPER-CVAD-A REGIMEN
     Route: 065
     Dates: start: 2013
  17. ENDOXAN [Suspect]
     Active Substance: CYCLOPHOSPHAMIDE
     Dosage: FC REGIMEN, DAY -8
     Route: 065
     Dates: start: 20150829
  18. VINCRISTINE [Concomitant]
     Active Substance: VINCRISTINE
     Dosage: HYPER-CVAD-B REGIMEN
     Route: 065
     Dates: start: 2013
  19. DAUNORUBICIN [Concomitant]
     Active Substance: DAUNORUBICIN
     Indication: PHILADELPHIA CHROMOSOME POSITIVE
     Dosage: VDCP REGIMEN
     Route: 065
     Dates: start: 2013
  20. DEXAMETHASONE. [Concomitant]
     Active Substance: DEXAMETHASONE
     Dosage: HYPER-CVAD-B REGIMEN
     Route: 065
     Dates: start: 2013
  21. FLUDARABINE [Suspect]
     Active Substance: FLUDARABINE PHOSPHATE
     Indication: PHILADELPHIA CHROMOSOME POSITIVE
     Dosage: DAYS -4 TO -3
     Route: 065
     Dates: start: 20150829
  22. FLUDARABINE [Suspect]
     Active Substance: FLUDARABINE PHOSPHATE
     Indication: ACUTE LYMPHOCYTIC LEUKAEMIA
  23. PREDNISONE. [Concomitant]
     Active Substance: PREDNISONE
     Indication: B-CELL TYPE ACUTE LEUKAEMIA
     Dosage: VDLP REGIMEN
     Route: 065
     Dates: start: 201301
  24. DASATINIB [Concomitant]
     Active Substance: DASATINIB
     Route: 065
  25. DEXAMETHASONE. [Concomitant]
     Active Substance: DEXAMETHASONE
     Indication: B-CELL TYPE ACUTE LEUKAEMIA
     Dosage: HYPER-CVAD-A REGIMEN
     Route: 065
     Dates: start: 2013
  26. ENDOXAN [Suspect]
     Active Substance: CYCLOPHOSPHAMIDE
     Indication: B-CELL TYPE ACUTE LEUKAEMIA
     Dosage: VDCP REGIMEN
     Route: 065
     Dates: start: 2013
  27. ENDOXAN [Suspect]
     Active Substance: CYCLOPHOSPHAMIDE
     Indication: PHILADELPHIA CHROMOSOME POSITIVE
     Dosage: HYPER-CVAD-B REGIMEN
     Route: 065
     Dates: start: 2013
  28. VINCRISTINE [Concomitant]
     Active Substance: VINCRISTINE
     Dosage: VDP REGIMEN
     Route: 065
     Dates: start: 2013
  29. DAUNORUBICIN [Concomitant]
     Active Substance: DAUNORUBICIN
     Dosage: VDP REGIMEN
     Route: 065
     Dates: start: 2013
  30. DAUNORUBICIN [Concomitant]
     Active Substance: DAUNORUBICIN
     Dosage: VDCP
     Route: 065
     Dates: start: 2013
  31. PREDNISONE. [Concomitant]
     Active Substance: PREDNISONE
     Indication: PHILADELPHIA CHROMOSOME POSITIVE
     Dosage: VDCP REGIMEN
     Route: 065
     Dates: start: 2013
  32. IMATINIB MESYLATE. [Concomitant]
     Active Substance: IMATINIB MESYLATE
     Indication: REMISSION NOT ACHIEVED
     Route: 065
  33. DAUNORUBICIN [Concomitant]
     Active Substance: DAUNORUBICIN
     Indication: B-CELL TYPE ACUTE LEUKAEMIA
     Dosage: VDLP REGIMEN
     Route: 065
     Dates: start: 201301
  34. DASATINIB [Concomitant]
     Active Substance: DASATINIB
     Indication: REMISSION NOT ACHIEVED
     Route: 065
  35. ADRIAMYCIN [Concomitant]
     Active Substance: DOXORUBICIN HYDROCHLORIDE
     Indication: PHILADELPHIA CHROMOSOME POSITIVE
     Dosage: HYPER-CVAD-B REGIMEN
     Route: 065
     Dates: start: 2013

REACTIONS (2)
  - Acute graft versus host disease in intestine [Recovering/Resolving]
  - Cytokine release syndrome [Recovering/Resolving]

NARRATIVE: CASE EVENT DATE: 2015
